FAERS Safety Report 16267020 (Version 1)
Quarter: 2019Q2

REPORT INFORMATION
  Report Type: Spontaneous
  Country: CL (occurrence: CL)
  Receive Date: 20190502
  Receipt Date: 20190502
  Transmission Date: 20190711
  Serious: Yes (Other)
  Sender: FDA-Public Use
  Company Number: CL-009507513-1903CHL003167

PATIENT
  Age: 19 Year
  Sex: Female
  Weight: 72.5 kg

DRUGS (1)
  1. IMPLANON [Suspect]
     Active Substance: ETONOGESTREL
     Dosage: 1 DOSAGE FORM
     Route: 059
     Dates: start: 20170821, end: 20190305

REACTIONS (6)
  - Breast pain [Unknown]
  - Breast mass [Unknown]
  - Feeling hot [Unknown]
  - Menometrorrhagia [Unknown]
  - Breast discharge [Unknown]
  - Breast cyst [Unknown]

NARRATIVE: CASE EVENT DATE: 2017
